FAERS Safety Report 20086080 (Version 1)
Quarter: 2021Q4

REPORT INFORMATION
  Report Type: Spontaneous
  Country: US (occurrence: US)
  Receive Date: 20211118
  Receipt Date: 20211118
  Transmission Date: 20220303
  Serious: No
  Sender: FDA-Public Use
  Company Number: US-PFIZER INC-2021488317

PATIENT
  Age: 61 Year
  Sex: Female
  Weight: 106.14 kg

DRUGS (1)
  1. HYDROXYZINE PAMOATE [Suspect]
     Active Substance: HYDROXYZINE PAMOATE
     Dosage: 25 MG, 3X/DAY

REACTIONS (2)
  - Somnolence [Unknown]
  - Intentional dose omission [Unknown]
